FAERS Safety Report 6218967-8 (Version None)
Quarter: 2009Q2

REPORT INFORMATION
  Report Type: 
  Country: None (occurrence: None)
  Receive Date: 20090608
  Receipt Date: 20090528
  Transmission Date: 20091009
  Serious: Yes (Hospitalization)
  Sender: FDA-Public Use
  Company Number: PHHY2008JP22484

PATIENT
  Sex: Male
  Weight: 70 kg

DRUGS (4)
  1. GLEEVEC [Suspect]
     Indication: CHRONIC MYELOID LEUKAEMIA
     Dosage: 300 MG DAILY
     Route: 048
     Dates: start: 20021011
  2. BASEN [Concomitant]
     Indication: DIABETES MELLITUS
     Dosage: 0.6 MG, UNK
     Route: 048
     Dates: start: 20000523
  3. EUGLUCON [Concomitant]
     Indication: DIABETES MELLITUS
     Dosage: 1.25 MG, UNK
     Route: 048
     Dates: start: 20000523
  4. GASTER [Concomitant]
     Indication: GASTRIC ULCER
     Dosage: 40 MG, UNK
     Route: 048
     Dates: start: 20000523

REACTIONS (4)
  - COLECTOMY [None]
  - COLON CANCER [None]
  - ILEECTOMY [None]
  - OCCULT BLOOD POSITIVE [None]
